FAERS Safety Report 24692085 (Version 1)
Quarter: 2024Q4

REPORT INFORMATION
  Report Type: Spontaneous
  Country: FR (occurrence: FR)
  Receive Date: 20241203
  Receipt Date: 20241203
  Transmission Date: 20250114
  Serious: Yes (Hospitalization)
  Sender: TAKEDA
  Company Number: None

PATIENT
  Age: 91 Year
  Sex: Female

DRUGS (3)
  1. BRINTELLIX [Suspect]
     Active Substance: VORTIOXETINE HYDROBROMIDE
     Indication: Depression
     Dosage: 20 MILLIGRAM
     Dates: start: 20240627, end: 20240709
  2. ASPIRIN [Suspect]
     Active Substance: ASPIRIN
     Indication: Transient ischaemic attack
     Dosage: 100 MILLIGRAM
     Dates: start: 20240604, end: 20240710
  3. ATORVASTATIN [Suspect]
     Active Substance: ATORVASTATIN
     Indication: Transient ischaemic attack
     Dosage: 10 MILLIGRAM
     Dates: start: 20240604, end: 20240710

REACTIONS (2)
  - Rash maculo-papular [Recovered/Resolved]
  - Angioedema [Recovered/Resolved]

NARRATIVE: CASE EVENT DATE: 20240709
